FAERS Safety Report 5339109-7 (Version None)
Quarter: 2007Q2

REPORT INFORMATION
  Report Type: 
  Country: None (occurrence: None)
  Receive Date: 20070330
  Receipt Date: 20060711
  Transmission Date: 20071010
  Serious: Yes (Life-Threatening, Hospitalization)
  Sender: FDA-Public Use
  Company Number: 2006EN000141

PATIENT
  Age: 4 Year
  Sex: Male
  Weight: 20 kg

DRUGS (3)
  1. ONCASPAR [Suspect]
     Indication: CHEMOTHERAPY
     Dosage: 1900 IU, X1, IM
     Route: 030
     Dates: start: 20060619, end: 20060619
  2. KYTRIL [Concomitant]
  3. VINCRISTINE [Concomitant]

REACTIONS (9)
  - ANAPHYLACTIC REACTION [None]
  - DYSKINESIA [None]
  - DYSPHONIA [None]
  - EYELID OEDEMA [None]
  - RASH [None]
  - RESPIRATORY DISORDER [None]
  - SWELLING FACE [None]
  - SWOLLEN TONGUE [None]
  - URTICARIA [None]
